FAERS Safety Report 6930353-1 (Version None)
Quarter: 2010Q3

REPORT INFORMATION
  Report Type: 
  Country: None (occurrence: None)
  Receive Date: 20100817
  Receipt Date: 20100817
  Transmission Date: 20110219
  Serious: No
  Sender: FDA-Public Use
  Company Number: None

PATIENT

DRUGS (2)
  1. VENLAFAXINE HCL EXTENDED-RELEASE [Suspect]
     Indication: BIPOLAR DISORDER
     Dosage: 150ML BEDTIME MOUTH
     Route: 048
     Dates: start: 20100708
  2. VENLAFAXINE HCL EXTENDED-RELEASE [Suspect]
     Indication: BIPOLAR DISORDER
     Dosage: 150ML BEDTIME MOUTH
     Route: 048
     Dates: start: 20100709

REACTIONS (2)
  - PRODUCT SUBSTITUTION ISSUE [None]
  - VOMITING [None]
